FAERS Safety Report 18701861 (Version 2)
Quarter: 2021Q1

REPORT INFORMATION
  Report Type: Spontaneous
  Country: PT (occurrence: PT)
  Receive Date: 20210105
  Receipt Date: 20210106
  Transmission Date: 20210419
  Serious: Yes (Hospitalization, Other)
  Sender: FDA-Public Use
  Company Number: PT-PFIZER INC-2020517200

PATIENT
  Age: 64 Year
  Sex: Male

DRUGS (2)
  1. METHOTREXATE SODIUM. [Suspect]
     Active Substance: METHOTREXATE SODIUM
     Dosage: 17.5 MG, DAILY
     Route: 048
  2. FOLIC ACID. [Concomitant]
     Active Substance: FOLIC ACID
     Dosage: UNK

REACTIONS (13)
  - Breath odour [Recovered/Resolved]
  - Product administration error [Recovered/Resolved]
  - Myelosuppression [Recovered/Resolved]
  - Oropharyngeal swelling [Recovered/Resolved]
  - Dysphagia [Recovered/Resolved]
  - Overdose [Recovered/Resolved]
  - Stomatitis [Recovered/Resolved]
  - Immunosuppression [Recovered/Resolved]
  - Hepatotoxicity [Recovered/Resolved]
  - Oral candidiasis [Recovered/Resolved]
  - Rash pruritic [Recovered/Resolved]
  - Face oedema [Recovered/Resolved]
  - Toxicity to various agents [Recovered/Resolved]
